FAERS Safety Report 22871721 (Version 2)
Quarter: 2023Q4

REPORT INFORMATION
  Report Type: Spontaneous
  Country: IT (occurrence: IT)
  Receive Date: 20230828
  Receipt Date: 20231026
  Transmission Date: 20240110
  Serious: No
  Sender: FDA-Public Use
  Company Number: IT-AstraZeneca-2023A188160

PATIENT

DRUGS (2)
  1. GOSERELIN [Suspect]
     Active Substance: GOSERELIN
     Indication: Mastectomy
     Dosage: 10.8 MILLIGRAM, EVERY THREE MONTHS,
     Route: 058
     Dates: start: 201802
  2. ZOLADEX [Suspect]
     Active Substance: GOSERELIN ACETATE
     Indication: Mastectomy
     Dosage: UNK
     Route: 065

REACTIONS (9)
  - Mobility decreased [Unknown]
  - Injection site pain [Unknown]
  - Injection site haemorrhage [Unknown]
  - Injection site discomfort [Unknown]
  - Decreased activity [Unknown]
  - Wrong technique in device usage process [Unknown]
  - Off label use [Unknown]
  - Device issue [Unknown]
  - Device malfunction [Unknown]
